FAERS Safety Report 4356935-1 (Version None)
Quarter: 2004Q2

REPORT INFORMATION
  Report Type: 
  Country: None (occurrence: None)
  Receive Date: 20040507
  Receipt Date: 20040427
  Transmission Date: 20050107
  Serious: Yes (Hospitalization)
  Sender: FDA-Public Use
  Company Number: JP-JNJFOC-20040405599

PATIENT
  Age: 45 Year
  Sex: Female

DRUGS (9)
  1. LEVOFLOXACIN [Suspect]
     Indication: LUNG DISORDER
     Dosage: 1 G, ORAL
     Route: 048
     Dates: start: 20040220, end: 20040226
  2. VALACYCLOVIR HCL [Suspect]
     Dosage: 1 G, ORAL
     Route: 048
     Dates: start: 20040223
  3. VIREAD (IDOXURIDINE) [Concomitant]
  4. IMODIUM [Concomitant]
  5. LEVOTHYROXINE SODIUM [Concomitant]
  6. GLUCOPHAGE [Concomitant]
  7. GLYBURIDE [Concomitant]
  8. EPIVIR [Concomitant]
  9. SUSTIVA [Concomitant]

REACTIONS (2)
  - PUPILS UNEQUAL [None]
  - VISION BLURRED [None]
